FAERS Safety Report 9553457 (Version 1)
Quarter: 2013Q3

REPORT INFORMATION
  Report Type: Spontaneous
  Country: US (occurrence: None)
  Receive Date: 20130724
  Receipt Date: 20130724
  Transmission Date: 20140515
  Serious: Yes (Other)
  Sender: FDA-Public Use
  Company Number: PHEH2012US020758

PATIENT
  Age: 59 Year
  Sex: Female

DRUGS (2)
  1. GLEEVEC [Suspect]
     Route: 048
     Dates: start: 20120106
  2. XANAX (ALPRAZOLAM) [Concomitant]

REACTIONS (5)
  - Angina pectoris [None]
  - Chest pain [None]
  - Blood pressure increased [None]
  - Palpitations [None]
  - Blood potassium decreased [None]
